FAERS Safety Report 8575154-6 (Version None)
Quarter: 2012Q3

REPORT INFORMATION
  Report Type: 
  Country: None (occurrence: None)
  Receive Date: 20120807
  Receipt Date: 20120803
  Transmission Date: 20120928
  Serious: Yes (Other)
  Sender: FDA-Public Use
  Company Number: US-PFIZER INC-2012189604

PATIENT
  Age: 58 Year
  Sex: Male

DRUGS (7)
  1. XALATAN [Suspect]
     Dosage: 0.005 %, 1 DROP QD IN PM
  2. LEVOTHROID [Concomitant]
     Dosage: UNK
  3. LEVEMIR [Concomitant]
     Dosage: UNK
  4. NITROSTAT [Suspect]
     Indication: CHEST PAIN
     Dosage: 0.4 MG, AS NEEDED
     Route: 048
  5. PRAVASTATIN [Concomitant]
     Dosage: UNK
  6. NOVOLOG [Concomitant]
     Dosage: UNK
  7. ASPIRIN [Concomitant]
     Dosage: UNK

REACTIONS (1)
  - BLINDNESS [None]
